FAERS Safety Report 13380138 (Version 1)
Quarter: 2017Q1

REPORT INFORMATION
  Report Type: Spontaneous
  Country: US (occurrence: US)
  Receive Date: 20170328
  Receipt Date: 20170328
  Transmission Date: 20170429
  Serious: Yes (Hospitalization)
  Sender: FDA-Public Use
  Company Number: US-ELI_LILLY_AND_COMPANY-US201608002765

PATIENT
  Age: 61 Year
  Sex: Female

DRUGS (4)
  1. CYMBALTA [Suspect]
     Active Substance: DULOXETINE HYDROCHLORIDE
     Indication: PRODUCT USED FOR UNKNOWN INDICATION
     Dosage: 120 MG, QD
     Route: 065
  2. CYMBALTA [Suspect]
     Active Substance: DULOXETINE HYDROCHLORIDE
     Dosage: 60 MG, QD
     Route: 065
     Dates: end: 20100328
  3. XANAX [Concomitant]
     Active Substance: ALPRAZOLAM
     Dosage: 0.5 MG, BID
     Route: 065
  4. WELLBUTRIN [Concomitant]
     Active Substance: BUPROPION HYDROCHLORIDE

REACTIONS (27)
  - Headache [Recovered/Resolved]
  - Anxiety [Recovered/Resolved]
  - Photophobia [Unknown]
  - Emotional distress [Unknown]
  - Lethargy [Unknown]
  - Dysphoria [Unknown]
  - Fatigue [Unknown]
  - Irritability [Unknown]
  - Hyperhidrosis [Unknown]
  - Sensory disturbance [Unknown]
  - Hypomania [Unknown]
  - Suicide attempt [Unknown]
  - Tinnitus [Unknown]
  - Electric shock [Unknown]
  - Hyperaesthesia [Unknown]
  - Diarrhoea [Unknown]
  - Nausea [Unknown]
  - Agitation [Unknown]
  - Drug withdrawal syndrome [Recovered/Resolved]
  - Middle insomnia [Recovering/Resolving]
  - Confusional state [Unknown]
  - Major depression [Recovering/Resolving]
  - Mental status changes [Unknown]
  - Vertigo [Unknown]
  - Dizziness [Unknown]
  - Paraesthesia [Unknown]
  - Suicidal ideation [Recovered/Resolved]

NARRATIVE: CASE EVENT DATE: 201003
